FAERS Safety Report 25814348 (Version 1)
Quarter: 2025Q3

REPORT INFORMATION
  Report Type: Spontaneous
  Country: US (occurrence: None)
  Receive Date: 20250917
  Receipt Date: 20250917
  Transmission Date: 20251020
  Serious: Yes (Hospitalization)
  Sender: FDA-CTU
  Company Number: None

PATIENT
  Age: 67 Year
  Sex: Female
  Weight: 101.4 kg

DRUGS (15)
  1. MYCOPHENOLIC ACID [Suspect]
     Active Substance: MYCOPHENOLIC ACID
     Indication: Renal transplant
     Dosage: 360MG/MG BID ORAL ???THERAPY STARTED:  05--DEC-?
     Route: 048
  2. TACROLIMUS [Suspect]
     Active Substance: TACROLIMUS
     Indication: Renal transplant
     Dosage: 3 MG/MG BID ORAL ?THERAPY STARTED: 05-DEC?
     Route: 048
  3. FISH OIL 1000MG CAPSULES [Concomitant]
  4. VITAMIN D 2000 IU TABLETS [Concomitant]
  5. COREG 6.25 MG TABLETS [Concomitant]
  6. TACROLIMUS [Concomitant]
     Active Substance: TACROLIMUS
  7. TACROLIMUS [Concomitant]
     Active Substance: TACROLIMUS
  8. ADVAIR DISKUS 250/50MCG (YELLOW) 60 [Concomitant]
  9. AMLODIPINE BESYLATE 10 MG TABLETS [Concomitant]
  10. LANTUS U-100 INSULIN 10ML [Concomitant]
  11. NOVOLOG U-100 INSULIN VL 10ML [Concomitant]
  12. ONE TOUCH VERIO TEST ST (NEW) 1005 [Concomitant]
  13. ATORVASTATIN CALCIUM [Concomitant]
     Active Substance: ATORVASTATIN CALCIUM
  14. CETIRIZINE [Concomitant]
     Active Substance: CETIRIZINE HYDROCHLORIDE
  15. PROAIR HFA ORAL INH (200 PFS) 8.5G [Concomitant]

REACTIONS (1)
  - Cardiac disorder [None]

NARRATIVE: CASE EVENT DATE: 20250826
